FAERS Safety Report 11109139 (Version 1)
Quarter: 2015Q2

REPORT INFORMATION
  Report Type: Spontaneous
  Country: US (occurrence: None)
  Receive Date: 20150511
  Receipt Date: 20150511
  Transmission Date: 20150821
  Serious: No
  Sender: FDA-Public Use
  Company Number: None

PATIENT
  Age: 30 Year
  Sex: Male
  Weight: 68.04 kg

DRUGS (7)
  1. MIRALAX [Concomitant]
     Active Substance: POLYETHYLENE GLYCOL 3350
  2. LAMOTRIGINE ODT [Suspect]
     Active Substance: LAMOTRIGINE
     Indication: AFFECTIVE DISORDER
     Dosage: 1 PILL
     Route: 048
     Dates: start: 20150507, end: 20150510
  3. PRISTIQ EXTENDED RELEASE [Concomitant]
     Active Substance: DESVENLAFAXINE SUCCINATE
  4. CITRACEL [Concomitant]
  5. AMITIZA [Concomitant]
     Active Substance: LUBIPROSTONE
  6. ACTICLATE [Concomitant]
     Active Substance: DOXYCYCLINE HYCLATE
  7. LAMOTRIGINE ODT [Suspect]
     Active Substance: LAMOTRIGINE
     Indication: BIPOLAR DISORDER
     Dosage: 1 PILL
     Route: 048
     Dates: start: 20150507, end: 20150510

REACTIONS (6)
  - Headache [None]
  - Product taste abnormal [None]
  - Vision blurred [None]
  - Product solubility abnormal [None]
  - Product physical consistency issue [None]
  - Product substitution issue [None]

NARRATIVE: CASE EVENT DATE: 20150508
